FAERS Safety Report 19421061 (Version 6)
Quarter: 2021Q3

REPORT INFORMATION
  Report Type: Spontaneous
  Country: AT (occurrence: AT)
  Receive Date: 20210616
  Receipt Date: 20210917
  Transmission Date: 20211014
  Serious: Yes (Other)
  Sender: FDA-Public Use
  Company Number: AT-ALNYLAM PHARMACEUTICALS, INC.-ALN-2021-001395

PATIENT

DRUGS (8)
  1. DEXAMETHASONE. [Concomitant]
     Active Substance: DEXAMETHASONE
     Indication: PROPHYLAXIS
     Dosage: 10 MILLIGRAM, Q3W,  60 MINUTES BEFORE ONPATTRO
     Route: 048
  2. PARACETAMOL [Concomitant]
     Active Substance: ACETAMINOPHEN
     Indication: PROPHYLAXIS
     Dosage: 500 MILLIGRAM, Q3W, 60 MINUTES BEFORE ONPATTRO
     Route: 048
  3. INOTERSEN [Concomitant]
     Active Substance: INOTERSEN SODIUM
     Indication: AMYLOIDOSIS
     Route: 065
  4. TAFAMIDIS [Concomitant]
     Active Substance: TAFAMIDIS MEGLUMINE
     Indication: AMYLOIDOSIS
     Route: 065
  5. ONPATTRO [Suspect]
     Active Substance: PATISIRAN SODIUM
     Indication: PRODUCT USED FOR UNKNOWN INDICATION
     Dosage: 22.2 MILLIGRAM, Q3W
     Route: 042
     Dates: start: 20210211
  6. DIPHENHYDRAMINE. [Concomitant]
     Active Substance: DIPHENHYDRAMINE
     Indication: PROPHYLAXIS
     Dosage: 50 MILLIGRAM, Q3W,  60 MINUTES BEFORE ONPATTRO
     Route: 048
  7. FAMOTIDINE. [Concomitant]
     Active Substance: FAMOTIDINE
     Indication: PROPHYLAXIS
     Dosage: 50 MILLIGRAM, Q3W  60 MINUTES BEFORE ONPATTRO
     Route: 048
  8. HUMIRA [Concomitant]
     Active Substance: ADALIMUMAB
     Indication: RHEUMATOID ARTHRITIS
     Dosage: EVERY 14 DAYS
     Route: 058

REACTIONS (3)
  - Pleural effusion [Recovered/Resolved]
  - Intentional dose omission [Unknown]
  - Abdominal wall oedema [Unknown]

NARRATIVE: CASE EVENT DATE: 20210518
